FAERS Safety Report 10371121 (Version 2)
Quarter: 2014Q3

REPORT INFORMATION
  Report Type: Spontaneous
  Country: NL (occurrence: NL)
  Receive Date: 20140808
  Receipt Date: 20140808
  Transmission Date: 20150326
  Serious: Yes (Other)
  Sender: FDA-Public Use
  Company Number: NL-ASTRAZENECA-2014SE52755

PATIENT
  Sex: Female
  Weight: 1.1 kg

DRUGS (1)
  1. QUETIAPINE [Suspect]
     Active Substance: QUETIAPINE
     Indication: SCHIZOPHRENIA
     Route: 064

REACTIONS (2)
  - Foetal growth restriction [Recovered/Resolved]
  - Bradycardia foetal [Recovering/Resolving]

NARRATIVE: CASE EVENT DATE: 20140713
